FAERS Safety Report 20446469 (Version 1)
Quarter: 2022Q1

REPORT INFORMATION
  Report Type: Spontaneous
  Country: US (occurrence: US)
  Receive Date: 20220208
  Receipt Date: 20220208
  Transmission Date: 20220423
  Serious: Yes (Other)
  Sender: FDA-Public Use
  Company Number: US-GW PHARMA-202201USGW00493

PATIENT
  Sex: Male
  Weight: 38.549 kg

DRUGS (1)
  1. EPIDIOLEX [Suspect]
     Active Substance: CANNABIDIOL
     Indication: Lennox-Gastaut syndrome
     Dosage: 15.56 MG/KG/DAY, 300 MILLIGRAM, BID
     Route: 048
     Dates: start: 202109

REACTIONS (2)
  - Pneumonia [Unknown]
  - Weight decreased [Unknown]
